FAERS Safety Report 5221596-6 (Version None)
Quarter: 2007Q1

REPORT INFORMATION
  Report Type: 
  Country: None (occurrence: None)
  Receive Date: 20070129
  Receipt Date: 20070118
  Transmission Date: 20070707
  Serious: Yes (Hospitalization)
  Sender: FDA-Public Use
  Company Number: US-ELI_LILLY_AND_COMPANY-US200609003583

PATIENT
  Age: 28 Year
  Sex: Male

DRUGS (2)
  1. ZYPREXA [Suspect]
     Dosage: 40 MG, DAILY (1/D)
     Dates: start: 20030101, end: 20050801
  2. ZYPREXA [Suspect]
     Dosage: 20 MG, DAILY (1/D)

REACTIONS (4)
  - CARDIAC DISORDER [None]
  - CHEST PAIN [None]
  - DIABETES MELLITUS [None]
  - PRESCRIBED OVERDOSE [None]
